FAERS Safety Report 20525575 (Version 2)
Quarter: 2022Q3

REPORT INFORMATION
  Report Type: Report from Study
  Country: US (occurrence: US)
  Receive Date: 20220228
  Receipt Date: 20220905
  Transmission Date: 20221027
  Serious: Yes (Death, Hospitalization)
  Sender: FDA-Public Use
  Company Number: US-ONCOPEPPR-00909

PATIENT
  Age: 80 Year
  Sex: Male

DRUGS (3)
  1. PEPAXTO [Suspect]
     Active Substance: MELPHALAN FLUFENAMIDE
     Indication: Plasma cell myeloma
     Route: 065
     Dates: start: 20210923
  2. PEPAXTO [Suspect]
     Active Substance: MELPHALAN FLUFENAMIDE
     Indication: Plasma cell myeloma
     Dates: start: 20211021
  3. PEPAXTO [Suspect]
     Active Substance: MELPHALAN FLUFENAMIDE
     Indication: Plasma cell myeloma
     Dates: start: 20211118

REACTIONS (4)
  - Plasma cell myeloma [Fatal]
  - Drug intolerance [Unknown]
  - Sepsis [Unknown]
  - Poor dental condition [Unknown]

NARRATIVE: CASE EVENT DATE: 20220212
